FAERS Safety Report 12313976 (Version 1)
Quarter: 2016Q2

REPORT INFORMATION
  Report Type: Spontaneous
  Country: US (occurrence: None)
  Receive Date: 20160427
  Receipt Date: 20160427
  Transmission Date: 20160815
  Serious: Yes (Death)
  Sender: FDA-Public Use
  Company Number: None

PATIENT
  Age: 76 Year
  Sex: Male

DRUGS (2)
  1. SPIRONOLACTONE, 12.5 MG [Concomitant]
     Active Substance: SPIRONOLACTONE
     Route: 048
  2. LOSARTAN, 25 MG [Suspect]
     Active Substance: LOSARTAN
     Route: 048

REACTIONS (3)
  - Hyperkalaemia [None]
  - Acute kidney injury [None]
  - Atrioventricular block complete [None]

NARRATIVE: CASE EVENT DATE: 20150303
